FAERS Safety Report 10518685 (Version 1)
Quarter: 2014Q4

REPORT INFORMATION
  Report Type: Spontaneous
  Country: DE (occurrence: DE)
  Receive Date: 20141015
  Receipt Date: 20141015
  Transmission Date: 20150528
  Serious: Yes (Other)
  Sender: FDA-Public Use
  Company Number: DE-LEO PHARMA-228527

PATIENT
  Sex: Male

DRUGS (1)
  1. PICATO [Suspect]
     Active Substance: INGENOL MEBUTATE
     Indication: ACTINIC KERATOSIS
     Route: 061
     Dates: start: 20140609, end: 20140611

REACTIONS (10)
  - Erythema [Recovering/Resolving]
  - Oedema [Recovering/Resolving]
  - Pain [Recovering/Resolving]
  - Blister [Recovering/Resolving]
  - Drug administered at inappropriate site [Unknown]
  - Infection [Recovering/Resolving]
  - Blood pressure increased [Recovering/Resolving]
  - Eyelid oedema [Recovering/Resolving]
  - Rash pustular [Recovering/Resolving]
  - Eye pain [Recovering/Resolving]

NARRATIVE: CASE EVENT DATE: 20140610
